FAERS Safety Report 9184811 (Version 1)
Quarter: 2013Q1

REPORT INFORMATION
  Report Type: Report from Study
  Country: PE (occurrence: PE)
  Receive Date: 20130325
  Receipt Date: 20130325
  Transmission Date: 20140127
  Serious: Yes (Other)
  Sender: FDA-Public Use
  Company Number: PE-009507513-1303PER009220

PATIENT
  Age: 37 Year
  Sex: Female

DRUGS (4)
  1. ISENTRESS [Suspect]
     Dosage: 800 MG, QD
     Route: 048
     Dates: start: 20120619
  2. REYATAZ [Suspect]
     Dosage: 300 MG, QD
     Route: 048
     Dates: start: 20120619
  3. NORVIR [Suspect]
     Dosage: 100 MG, QD
     Route: 048
     Dates: start: 20120619
  4. VIREAD [Suspect]
     Dosage: 300 MG, QD
     Route: 048
     Dates: start: 20120619

REACTIONS (2)
  - Abortion spontaneous [Unknown]
  - Exposure during pregnancy [Recovered/Resolved]
